FAERS Safety Report 6965570-8 (Version None)
Quarter: 2010Q3

REPORT INFORMATION
  Report Type: 
  Country: None (occurrence: None)
  Receive Date: 20100903
  Receipt Date: 20100823
  Transmission Date: 20110219
  Serious: Yes (Hospitalization)
  Sender: FDA-Public Use
  Company Number: DE-ROCHE-720233

PATIENT
  Sex: Female
  Weight: 63 kg

DRUGS (6)
  1. CAPECITABINE [Suspect]
     Indication: BREAST CANCER
     Dosage: DOSE ROUTE TAKEN FROM PROTOCOL.TEMPORARILY INTERRUPTED.
     Route: 048
     Dates: start: 20100722
  2. BEVACIZUMAB [Suspect]
     Indication: BREAST CANCER
     Dosage: DOSE AND ROUTE TAKEN FROM PROTOCOL.LAST DOSE PRIOR TO SAE 22 JULY 2010.TEMPORARILY INTERRUPTED
     Route: 042
     Dates: start: 20100722
  3. MCP [Concomitant]
     Dosage: FREQUENCY:AS REQUIRED
     Dates: start: 20100722
  4. OMEPRAZOLE [Concomitant]
     Dates: start: 20100813
  5. LOPERAMIDE [Concomitant]
     Dosage: AS REQUIRED
     Dates: start: 20100722
  6. VOMEX A [Concomitant]
     Dosage: MEDICATION REPORTED AS: VOMEX
     Dates: start: 20100726

REACTIONS (2)
  - DEHYDRATION [None]
  - VERTIGO [None]
